FAERS Safety Report 7390671-2 (Version None)
Quarter: 2011Q2

REPORT INFORMATION
  Report Type: 
  Country: None (occurrence: None)
  Receive Date: 20110404
  Receipt Date: 20110324
  Transmission Date: 20111010
  Serious: No
  Sender: FDA-Public Use
  Company Number: US-BIOGENIDEC-2011BI002605

PATIENT
  Sex: Female

DRUGS (1)
  1. TYSABRI [Suspect]
     Indication: MULTIPLE SCLEROSIS
     Route: 042
     Dates: start: 20080611

REACTIONS (12)
  - MUSCLE TWITCHING [None]
  - BONE DISORDER [None]
  - OEDEMA PERIPHERAL [None]
  - LUMBAR VERTEBRAL FRACTURE [None]
  - BONE PAIN [None]
  - MIGRAINE [None]
  - WEIGHT INCREASED [None]
  - HALLUCINATION [None]
  - VOMITING [None]
  - TREMOR [None]
  - MUSCLE SPASMS [None]
  - HEPATIC ENZYME INCREASED [None]
